FAERS Safety Report 21617057 (Version 3)
Quarter: 2023Q1

REPORT INFORMATION
  Report Type: Report from Study
  Country: ES (occurrence: ES)
  Receive Date: 20221118
  Receipt Date: 20230221
  Transmission Date: 20230418
  Serious: Yes (Death, Life-Threatening)
  Sender: FDA-Public Use
  Company Number: ES-GILEAD-2022-0602565

PATIENT
  Age: 61 Year
  Sex: Male
  Weight: 111 kg

DRUGS (38)
  1. BREXUCABTAGENE AUTOLEUCEL [Suspect]
     Active Substance: BREXUCABTAGENE AUTOLEUCEL
     Indication: Mantle cell lymphoma
     Dosage: 68 ML
     Route: 042
     Dates: start: 20220909, end: 20220909
  2. FLUDARABINE [Suspect]
     Active Substance: FLUDARABINE PHOSPHATE
     Indication: Bone marrow conditioning regimen
     Dosage: 65 MG
     Route: 042
     Dates: start: 20220825, end: 20220827
  3. CYCLOPHOSPHAMIDE [Suspect]
     Active Substance: CYCLOPHOSPHAMIDE
     Indication: Bone marrow conditioning regimen
     Dosage: 1077 MG
     Route: 042
     Dates: start: 20220825, end: 20220827
  4. MESNA [Suspect]
     Active Substance: MESNA
     Indication: Bone marrow conditioning regimen
     Dosage: 538.52 MG
     Route: 042
     Dates: start: 20220825, end: 20220827
  5. ASPIRIN [Concomitant]
     Active Substance: ASPIRIN
     Dosage: 100,MG,DAILY
     Route: 048
     Dates: start: 2013
  6. CYTARABINE [Concomitant]
     Active Substance: CYTARABINE
     Indication: Chemotherapy
     Dosage: 1G/M2
     Route: 042
     Dates: start: 20220729, end: 20220730
  7. BISOPROLOL [Concomitant]
     Active Substance: BISOPROLOL
     Dosage: 2.5,MG,DAILY
     Route: 048
  8. ENALAPRIL [Concomitant]
     Active Substance: ENALAPRIL
     Dosage: 5,MG,DAILY
     Route: 048
  9. ATORVASTATIN [Concomitant]
     Active Substance: ATORVASTATIN
     Dosage: 10,MG,DAILY
     Route: 048
  10. ALLOPURINOL [Concomitant]
     Active Substance: ALLOPURINOL
     Dosage: 300,MG,DAILY
     Route: 048
  11. OMEPRAZOLE [Concomitant]
     Active Substance: OMEPRAZOLE
     Dosage: 20,MG,DAILY
     Route: 048
  12. URSODIOL [Concomitant]
     Active Substance: URSODIOL
     Dosage: 150,MG,FOUR TIMES DAILY
     Route: 048
     Dates: start: 20220823, end: 20221025
  13. MYCOSTATIN [Concomitant]
     Active Substance: NYSTATIN
     Dosage: 100000,IU,THREE TIMES DAILY
     Route: 050
     Dates: start: 20220825, end: 20221010
  14. LEVETIRACETAM [Concomitant]
     Active Substance: LEVETIRACETAM
     Dosage: 500,MG,TWICE DAILY
     Route: 048
     Dates: start: 20220830, end: 20220927
  15. LEVETIRACETAM [Concomitant]
     Active Substance: LEVETIRACETAM
     Dosage: 250,MG,TWICE DAILY
     Route: 048
     Dates: start: 20220928, end: 20221010
  16. ACYCLOVIR [Concomitant]
     Active Substance: ACYCLOVIR
     Dosage: 800,MG,TWICE DAILY
     Route: 048
     Dates: start: 20220905, end: 20221006
  17. ACYCLOVIR [Concomitant]
     Active Substance: ACYCLOVIR
     Dosage: 800,MG,TWICE DAILY
     Route: 048
     Dates: start: 20221012, end: 20221025
  18. FUROSEMIDE [Concomitant]
     Active Substance: FUROSEMIDE
     Dosage: 20,MG,THREE TIMES DAILY
     Route: 042
     Dates: start: 20220914, end: 20221008
  19. FUROSEMIDE [Concomitant]
     Active Substance: FUROSEMIDE
     Dosage: 20,MG,DAILY
     Route: 042
     Dates: start: 20221009, end: 20221011
  20. FUROSEMIDE [Concomitant]
     Active Substance: FUROSEMIDE
     Dosage: 40,MG,DAILY
     Route: 042
     Dates: start: 20221009, end: 20221012
  21. FUROSEMIDE [Concomitant]
     Active Substance: FUROSEMIDE
     Dosage: 20,MG,TWICE DAILY
     Route: 042
     Dates: start: 20221012, end: 20221021
  22. FUROSEMIDE [Concomitant]
     Active Substance: FUROSEMIDE
     Dosage: 40,MG,TWICE DAILY
     Route: 042
     Dates: start: 20221013, end: 20221021
  23. FUROSEMIDE [Concomitant]
     Active Substance: FUROSEMIDE
     Dosage: 20,MG,DAILY
     Route: 042
     Dates: start: 20221022, end: 20221022
  24. FIBRINOGENO [Concomitant]
     Dosage: 1,G,TWICE DAILY
     Route: 042
     Dates: start: 20220924, end: 20220927
  25. FIBRINOGENO [Concomitant]
     Dosage: 1,G,DAILY
     Route: 042
     Dates: start: 20220928, end: 20221001
  26. FIBRINOGENO [Concomitant]
     Dosage: 1,G,TWICE DAILY
     Route: 042
     Dates: start: 20221002, end: 20221013
  27. FIBRINOGENO [Concomitant]
     Dosage: 1,G,DAILY
     Route: 042
     Dates: start: 20221014, end: 20221017
  28. LINEZOLID [Concomitant]
     Active Substance: LINEZOLID
     Dosage: 600,MG,TWICE DAILY
     Route: 042
     Dates: start: 20220924, end: 20220928
  29. MEROPENEM [Concomitant]
     Active Substance: MEROPENEM
     Dosage: 1,G,THREE TIMES DAILY
     Route: 042
     Dates: start: 20220924, end: 20220928
  30. MEROPENEM [Concomitant]
     Active Substance: MEROPENEM
     Dosage: 1,G,THREE TIMES DAILY
     Route: 042
     Dates: start: 20221021, end: 20221025
  31. LEVOFLOXACIN [Concomitant]
     Active Substance: LEVOFLOXACIN
     Dosage: 500,MG,DAILY
     Route: 042
     Dates: start: 20220927, end: 20221017
  32. CEFTRIAXONE [Concomitant]
     Active Substance: CEFTRIAXONE
     Dosage: 2,G,DAILY
     Route: 042
     Dates: start: 20220928, end: 20221005
  33. CEFTRIAXONE [Concomitant]
     Active Substance: CEFTRIAXONE
     Dosage: 2,G,DAILY
     Route: 042
     Dates: start: 20221018, end: 20221021
  34. ALBUMIN HUMAN [Concomitant]
     Active Substance: ALBUMIN HUMAN
     Dosage: 10,G,TWICE DAILY
     Route: 042
     Dates: start: 20220930, end: 20221018
  35. ALBUMIN HUMAN [Concomitant]
     Active Substance: ALBUMIN HUMAN
     Dosage: 10,G,ONCE
     Route: 042
     Dates: start: 20221019, end: 20221019
  36. FOSCARNET [Concomitant]
     Active Substance: FOSCARNET
     Dosage: 5,G,TWICE DAILY
     Route: 042
     Dates: start: 20221005, end: 20221012
  37. PENTAMIDINE [Concomitant]
     Active Substance: PENTAMIDINE
     Dosage: 300,MG,DAILY
     Route: 055
     Dates: start: 20221018, end: 20221025
  38. POTASSIUM CHLORIDE [Concomitant]
     Active Substance: POTASSIUM CHLORIDE
     Dosage: 8,OTHER,THREE TIMES DAILY
     Route: 048
     Dates: start: 20221019, end: 20221020

REACTIONS (2)
  - Septic shock [Fatal]
  - Hypotension [Recovered/Resolved]

NARRATIVE: CASE EVENT DATE: 20221024
